FAERS Safety Report 9058349 (Version 2)
Quarter: 2013Q1

REPORT INFORMATION
  Report Type: Spontaneous
  Country: US (occurrence: US)
  Receive Date: 20130211
  Receipt Date: 20130325
  Transmission Date: 20140127
  Serious: Yes (Hospitalization, Other)
  Sender: FDA-Public Use
  Company Number: US-BAYER-2013-015646

PATIENT
  Age: 26 Year
  Sex: Female
  Weight: 84.35 kg

DRUGS (12)
  1. YAZ [Suspect]
  2. YASMIN [Suspect]
     Dosage: UNK
     Dates: start: 200109, end: 200204
  3. AUGMENTIN [Concomitant]
     Dosage: 875 MG, UNK
     Route: 048
  4. DIFLUCAN [Concomitant]
     Dosage: 150 MG, UNK
     Route: 048
  5. GUAIFENESIN [Concomitant]
     Dosage: 1200 MG, UNK
     Route: 048
  6. ANAPROX [Concomitant]
     Indication: PAIN
     Dosage: 550 MG, UNK
     Route: 048
  7. MOTRIN [Concomitant]
     Dosage: 800 MG, UNK
     Route: 048
  8. MORPHINE SULFATE [Concomitant]
     Indication: PAIN
     Dosage: 4 MG, UNK
     Route: 042
  9. PHENERGAN [PROMETHAZINE] [Concomitant]
     Indication: NAUSEA
     Dosage: 6.25 MG, UNK
     Route: 042
  10. BEXTRA [VALDECOXIB] [Concomitant]
     Dosage: 20 MG, UNK
  11. NUBAIN [Concomitant]
  12. VICODIN [Concomitant]

REACTIONS (9)
  - Pulmonary embolism [None]
  - Pulmonary embolism [None]
  - Deep vein thrombosis [None]
  - Injury [None]
  - Pain [None]
  - General physical health deterioration [None]
  - Emotional distress [None]
  - Anxiety [None]
  - Pain [None]
